FAERS Safety Report 4752062-X (Version None)
Quarter: 2005Q3

REPORT INFORMATION
  Report Type: 
  Country: None (occurrence: None)
  Receive Date: 20050822
  Receipt Date: 20050531
  Transmission Date: 20060218
  Serious: No
  Sender: FDA-Public Use
  Company Number: PHEH2005US06145

PATIENT
  Age: 14 Year
  Sex: Female

DRUGS (3)
  1. ZELNORM [Suspect]
     Indication: CONSTIPATION
     Dosage: 6 MG,  ONCE/SINGLE,  ORAL
     Route: 048
  2. RISPERDAL [Concomitant]
  3. LEXAPRO [Concomitant]

REACTIONS (1)
  - NIGHTMARE [None]
